FAERS Safety Report 23797688 (Version 2)
Quarter: 2024Q2

REPORT INFORMATION
  Report Type: Other
  Country: US (occurrence: None)
  Receive Date: 20240430
  Receipt Date: 20240502
  Transmission Date: 20240716
  Serious: Yes (Hospitalization)
  Sender: FDA-Public Use
  Company Number: US-ROCHE-3553431

PATIENT
  Age: 79 Year
  Sex: Male

DRUGS (7)
  1. AVASTIN [Suspect]
     Active Substance: BEVACIZUMAB
     Indication: Meningioma
     Route: 042
     Dates: start: 202107
  2. EVEROLIMUS [Suspect]
     Active Substance: EVEROLIMUS
     Indication: Meningioma
     Route: 065
  3. OCTREOTIDE [Suspect]
     Active Substance: OCTREOTIDE\OCTREOTIDE ACETATE
     Indication: Meningioma
     Route: 065
  4. LUTATHERA [Concomitant]
     Active Substance: LUTETIUM OXODOTREOTIDE LU-177
     Dosage: 4 INFUSIONS
     Route: 042
     Dates: end: 202204
  5. VALPROIC ACID [Concomitant]
     Active Substance: VALPROIC ACID
  6. VIMPAT [Concomitant]
     Active Substance: LACOSAMIDE
  7. KEPPRA [Concomitant]
     Active Substance: LEVETIRACETAM

REACTIONS (1)
  - Metastasis [Unknown]

NARRATIVE: CASE EVENT DATE: 20210901
